FAERS Safety Report 4716429-8 (Version None)
Quarter: 2005Q3

REPORT INFORMATION
  Report Type: 
  Country: None (occurrence: None)
  Receive Date: 20050719
  Receipt Date: 20050707
  Transmission Date: 20060218
  Serious: Yes (Hospitalization)
  Sender: FDA-Public Use
  Company Number: US-JNJFOC-20050701606

PATIENT
  Sex: Female

DRUGS (10)
  1. INFLIXIMAB [Suspect]
     Indication: RHEUMATOID ARTHRITIS
     Route: 042
     Dates: start: 20020416, end: 20021014
  2. METHOTREXATE [Concomitant]
  3. CARDIZEM [Concomitant]
  4. CLONIDINE [Concomitant]
  5. FOLIC ACID [Concomitant]
  6. FUROSEMIDE [Concomitant]
  7. POTASSIUM CHLORIDE [Concomitant]
  8. TENORMIN [Concomitant]
  9. THYROID TAB [Concomitant]
  10. PRANDIN [Concomitant]

REACTIONS (1)
  - BREAST CANCER [None]
